FAERS Safety Report 14382593 (Version 1)
Quarter: 2018Q1

REPORT INFORMATION
  Report Type: Spontaneous
  Country: PL (occurrence: PL)
  Receive Date: 20180112
  Receipt Date: 20180112
  Transmission Date: 20180509
  Serious: Yes (Other)
  Sender: FDA-Public Use
  Company Number: PL-TERSERA THERAPEUTICS, LLC-2040024

PATIENT
  Age: 28 Year
  Sex: Female

DRUGS (2)
  1. TAMOXIFEN CITRATE. [Suspect]
     Active Substance: TAMOXIFEN CITRATE
     Dates: start: 201704
  2. ZOLADEX [Suspect]
     Active Substance: GOSERELIN ACETATE
     Indication: BREAST CANCER FEMALE
     Route: 065
     Dates: start: 201704

REACTIONS (5)
  - Metastases to lung [Unknown]
  - Metastases to liver [Unknown]
  - Musculoskeletal pain [Unknown]
  - Neck pain [Unknown]
  - Metastases to bone [Unknown]

NARRATIVE: CASE EVENT DATE: 201710
